FAERS Safety Report 19874682 (Version 1)
Quarter: 2021Q3

REPORT INFORMATION
  Report Type: Spontaneous
  Country: US (occurrence: US)
  Receive Date: 20210923
  Receipt Date: 20210923
  Transmission Date: 20211014
  Serious: No
  Sender: FDA-Public Use
  Company Number: US-BAYER-2021A215725

PATIENT
  Age: 85 Year
  Sex: Male

DRUGS (2)
  1. PLANTAGO SPP. [Suspect]
     Active Substance: PLANTAGO MAJOR LEAF
  2. MIRALAX [Suspect]
     Active Substance: POLYETHYLENE GLYCOL 3350
     Indication: GASTROINTESTINAL DISORDER
     Route: 048

REACTIONS (2)
  - Wrong technique in product usage process [Unknown]
  - Constipation [Unknown]
